FAERS Safety Report 13449790 (Version 1)
Quarter: 2017Q2

REPORT INFORMATION
  Report Type: Spontaneous
  Country: US (occurrence: US)
  Receive Date: 20170417
  Receipt Date: 20170417
  Transmission Date: 20170830
  Serious: No
  Sender: FDA-Public Use
  Company Number: US-BANPHARM-20164767

PATIENT
  Sex: Female

DRUGS (2)
  1. ALEVE [Suspect]
     Active Substance: NAPROXEN SODIUM
     Route: 048
  2. ALEVE CAPLETS [Suspect]
     Active Substance: NAPROXEN SODIUM

REACTIONS (2)
  - Drug prescribing error [Unknown]
  - Product use issue [Unknown]
